FAERS Safety Report 6174560-7 (Version None)
Quarter: 2009Q2

REPORT INFORMATION
  Report Type: 
  Country: None (occurrence: None)
  Receive Date: 20090430
  Receipt Date: 20080801
  Transmission Date: 20091009
  Serious: No
  Sender: FDA-Public Use
  Company Number: US-ASTRAZENECA-2008UW15314

PATIENT
  Age: 69 Year
  Sex: Female
  Weight: 116.6 kg

DRUGS (9)
  1. NEXIUM [Suspect]
     Route: 048
  2. TAZTIA XT [Concomitant]
  3. BENICAR [Concomitant]
  4. LASIX [Concomitant]
  5. ASPIRIN [Concomitant]
  6. LESCOL [Concomitant]
  7. ANTIVERT [Concomitant]
  8. EFFEXOR [Concomitant]
  9. WELLBUTRIN [Concomitant]

REACTIONS (1)
  - ABDOMINAL DISCOMFORT [None]
